FAERS Safety Report 8848338 (Version 1)
Quarter: 2012Q4

REPORT INFORMATION
  Report Type: 
  Country: FR (occurrence: FR)
  Receive Date: 20121019
  Receipt Date: 20121019
  Transmission Date: 20130627
  Serious: Yes (Life-Threatening)
  Sender: FDA-Public Use
  Company Number: FR-AMGEN-FRASP2012065731

PATIENT
  Age: 74 Year
  Sex: Female

DRUGS (3)
  1. ENBREL [Suspect]
     Indication: PSORIASIS
     Dosage: 50 mg, 2x/week
     Route: 058
     Dates: start: 201006
  2. ENBREL [Suspect]
     Dosage: 50 mg, weekly
     Route: 058
  3. AREDIA [Concomitant]
     Dosage: UNK

REACTIONS (1)
  - Metastatic bronchial carcinoma [Unknown]
